FAERS Safety Report 4650066-9 (Version None)
Quarter: 2005Q2

REPORT INFORMATION
  Report Type: 
  Country: None (occurrence: None)
  Receive Date: 20050428
  Receipt Date: 20050414
  Transmission Date: 20051028
  Serious: No
  Sender: FDA-Public Use
  Company Number: 02100-JPN-05-0161

PATIENT
  Age: 82 Year
  Sex: Female

DRUGS (7)
  1. CILOSTAZOL [Suspect]
     Indication: CEREBRAL INFARCTION
     Dosage: 100 MG ORAL
     Route: 048
     Dates: start: 20050304, end: 20050411
  2. ACETYL SALICYLIC ACID USP BAT [Concomitant]
  3. POTASSIUM CHLORIDE [Concomitant]
  4. ATORVASTATIN CALCIUM [Concomitant]
  5. FUROSEMIDE [Concomitant]
  6. CANDESARTAN CILEXETIL [Concomitant]
  7. LANSOPRAZOLE [Concomitant]

REACTIONS (1)
  - LOSS OF CONSCIOUSNESS [None]
